FAERS Safety Report 5050142-5 (Version None)
Quarter: 2006Q2

REPORT INFORMATION
  Report Type: 
  Country: None (occurrence: None)
  Receive Date: 20060614
  Receipt Date: 20060414
  Transmission Date: 20061013
  Serious: Yes (Other)
  Sender: FDA-Public Use
  Company Number: 444654

PATIENT
  Age: 53 Year
  Sex: Female
  Weight: 63 kg

DRUGS (1)
  1. BONIVA [Suspect]
     Indication: OSTEOPENIA
     Dosage: 1 PER MONTH   ORAL
     Route: 048
     Dates: start: 20060405, end: 20060405

REACTIONS (2)
  - OEDEMA PERIPHERAL [None]
  - PAIN [None]
